FAERS Safety Report 10135101 (Version 1)
Quarter: 2014Q2

REPORT INFORMATION
  Report Type: Spontaneous
  Country: IT (occurrence: IT)
  Receive Date: 20140428
  Receipt Date: 20140428
  Transmission Date: 20141212
  Serious: Yes (Other)
  Sender: FDA-Public Use
  Company Number: IT-WATSON-2014-08294

PATIENT
  Age: 68 Year
  Sex: Female

DRUGS (1)
  1. RISPERIDONE (UNKNOWN) [Suspect]
     Indication: PSYCHOTIC DISORDER
     Dosage: 2 ML, DAILY
     Route: 048
     Dates: start: 20140311, end: 20140411

REACTIONS (1)
  - No therapeutic response [Recovering/Resolving]
